FAERS Safety Report 7961981-2 (Version None)
Quarter: 2011Q4

REPORT INFORMATION
  Report Type: 
  Country: None (occurrence: None)
  Receive Date: 20111207
  Receipt Date: 20111129
  Transmission Date: 20120403
  Serious: Yes (Death, Life-Threatening)
  Sender: FDA-Public Use
  Company Number: FR-AMGEN-FRASP2011058550

PATIENT
  Age: 59 Year
  Sex: Female

DRUGS (5)
  1. LEVOTHYROXINE SODIUM [Concomitant]
  2. VECTIBIX [Suspect]
     Indication: COLORECTAL CANCER
     Dosage: 340 MG, UNK
     Route: 042
     Dates: start: 20110802, end: 20110817
  3. LOVENOX [Concomitant]
  4. DURAGESIC-100 [Concomitant]
  5. ESCITALOPRAM OXALATE [Concomitant]

REACTIONS (3)
  - DYSPNOEA [None]
  - DEATH [None]
  - INTERSTITIAL LUNG DISEASE [None]
